FAERS Safety Report 18777815 (Version 1)
Quarter: 2021Q1

REPORT INFORMATION
  Report Type: Spontaneous
  Country: US (occurrence: US)
  Receive Date: 20210122
  Receipt Date: 20210122
  Transmission Date: 20210419
  Serious: No
  Sender: FDA-Public Use
  Company Number: 2020SGN02204

PATIENT
  Sex: Female

DRUGS (1)
  1. TUKYSA [Suspect]
     Active Substance: TUCATINIB
     Indication: BREAST CANCER FEMALE
     Dosage: 150 MG TABLET, UNK

REACTIONS (10)
  - Abdominal distension [Unknown]
  - Pain [Unknown]
  - Flatulence [Unknown]
  - Asthenia [Unknown]
  - Dry skin [Unknown]
  - Abdominal pain [Unknown]
  - Skin exfoliation [Unknown]
  - Constipation [Unknown]
  - Erythema [Unknown]
  - Swelling [Unknown]
